FAERS Safety Report 9505649 (Version 1)
Quarter: 2013Q1

REPORT INFORMATION
  Report Type: Spontaneous
  Country: US (occurrence: None)
  Receive Date: 20130220
  Receipt Date: 20130220
  Transmission Date: 20140127
  Serious: No
  Sender: FDA-Public Use
  Company Number: 1000041121

PATIENT
  Age: 54 Year
  Sex: Male

DRUGS (6)
  1. VIIBRYD [Suspect]
     Indication: DEPRESSION
     Route: 048
     Dates: start: 2012, end: 2012
  2. SYNTHROID (LEVOTHYROXINE SODIUM) (LEVOTHYROXINE SODIUM [Concomitant]
  3. BYSTOLIC (NEBIVOLOL HYDROCHLORIDE) (NEBIVOLOL HYDROCHLORIDE) [Concomitant]
  4. HYDROCHLOROTHIAZISE (HYDROCHLOROTHIAZIDE) (HYDROCHLOROTHIAZIDE) [Concomitant]
  5. DIOVAN (VALSARTAN) (VALSARTAN) [Concomitant]
  6. AMLODIPINE (AMLODIPINE) (AMLODIPINE) [Concomitant]

REACTIONS (5)
  - Blood pressure increased [None]
  - Erectile dysfunction [None]
  - Male orgasmic disorder [None]
  - Nausea [None]
  - Anxiety [None]
